FAERS Safety Report 13990349 (Version 1)
Quarter: 2017Q3

REPORT INFORMATION
  Report Type: Report from Study
  Country: None (occurrence: US)
  Receive Date: 20170920
  Receipt Date: 20170920
  Transmission Date: 20171128
  Serious: Yes (Hospitalization, Other)
  Sender: FDA-Public Use
  Company Number: US-ABBVIE-17K-163-2104039-00

PATIENT
  Age: 67 Year
  Sex: Female
  Weight: 77.18 kg

DRUGS (7)
  1. HUMIRA [Suspect]
     Active Substance: ADALIMUMAB
     Route: 058
     Dates: start: 201408, end: 20170903
  2. GARLIC. [Concomitant]
     Active Substance: GARLIC
     Indication: BLOOD CHOLESTEROL INCREASED
     Route: 048
     Dates: start: 2017, end: 2017
  3. SIMVASTATIN. [Concomitant]
     Active Substance: SIMVASTATIN
     Indication: BLOOD CHOLESTEROL INCREASED
     Dates: start: 2017, end: 2017
  4. METHOTREXATE. [Concomitant]
     Active Substance: METHOTREXATE
     Indication: RHEUMATOID ARTHRITIS
     Dates: start: 2007, end: 201708
  5. LOVASTATIN. [Concomitant]
     Active Substance: LOVASTATIN
     Dates: start: 201707, end: 201707
  6. LOVASTATIN. [Concomitant]
     Active Substance: LOVASTATIN
     Indication: BLOOD CHOLESTEROL INCREASED
     Dates: start: 201706, end: 201707
  7. HUMIRA [Suspect]
     Active Substance: ADALIMUMAB
     Indication: RHEUMATOID ARTHRITIS
     Route: 058
     Dates: start: 2007, end: 201212

REACTIONS (9)
  - Anaemia [Recovered/Resolved]
  - Abdominal pain upper [Not Recovered/Not Resolved]
  - Intra-abdominal fluid collection [Recovering/Resolving]
  - Arthralgia [Not Recovered/Not Resolved]
  - Ascites [Recovering/Resolving]
  - Uterine leiomyoma [Recovered/Resolved]
  - White blood cell count increased [Unknown]
  - Ovarian cancer metastatic [Not Recovered/Not Resolved]
  - Gastric mucosal lesion [Unknown]

NARRATIVE: CASE EVENT DATE: 2007
